FAERS Safety Report 4990730-5 (Version None)
Quarter: 2006Q2

REPORT INFORMATION
  Report Type: 
  Country: None (occurrence: None)
  Receive Date: 20060428
  Receipt Date: 20060414
  Transmission Date: 20061013
  Serious: Yes (Hospitalization)
  Sender: FDA-Public Use
  Company Number: SI200604002964

PATIENT
  Sex: Female

DRUGS (1)
  1. ZYPREXA [Suspect]
     Indication: SOMATOFORM DISORDER
     Dosage: 5 MG ORAL
     Route: 048
     Dates: start: 20050801

REACTIONS (2)
  - KIDNEY TRANSPLANT REJECTION [None]
  - RENAL FAILURE [None]
